FAERS Safety Report 9682514 (Version 1)
Quarter: 2013Q4

REPORT INFORMATION
  Report Type: Spontaneous
  Country: IT (occurrence: IT)
  Receive Date: 20131112
  Receipt Date: 20131112
  Transmission Date: 20140711
  Serious: Yes (Hospitalization)
  Sender: FDA-Public Use
  Company Number: IT-JNJFOC-20131104563

PATIENT
  Age: 42 Year
  Sex: Female
  Weight: 62 kg

DRUGS (1)
  1. CAELYX [Suspect]
     Indication: BREAST CANCER
     Route: 042
     Dates: start: 20130820, end: 201310

REACTIONS (2)
  - Dermatitis [Recovered/Resolved]
  - Stomatitis [Recovered/Resolved]
